FAERS Safety Report 19706098 (Version 1)
Quarter: 2021Q3

REPORT INFORMATION
  Report Type: Spontaneous
  Country: DE (occurrence: DE)
  Receive Date: 20210817
  Receipt Date: 20210817
  Transmission Date: 20211014
  Serious: Yes (Hospitalization)
  Sender: FDA-Public Use
  Company Number: DE-TEVA-2021-DE-1941172

PATIENT
  Age: 60 Year
  Sex: Female
  Weight: 54 kg

DRUGS (18)
  1. FOLSAURE [Concomitant]
     Active Substance: FOLIC ACID
     Dosage: 5 MG, 1?0?0?01
     Route: 048
  2. TACROLIMUS. [Concomitant]
     Active Substance: TACROLIMUS
     Dosage: 1 MG, 3?0?2?0
     Route: 048
  3. PREDNISOLON [Concomitant]
     Active Substance: PREDNISOLONE
     Dosage: .5 DOSAGE FORMS DAILY; 5 MG, 0.5?0?0?0
     Route: 048
  4. METOCLOPRAMIDE. [Suspect]
     Active Substance: METOCLOPRAMIDE
     Dosage: 10 MILLIGRAM DAILY; 1?0?0?0
     Route: 048
  5. CYANOCOBALAMIN VITAMIN B 12 [Concomitant]
     Dosage: 400 MILLIGRAM DAILY; 1?0?0?0
     Route: 048
  6. ALFACALCIDOL [Concomitant]
     Active Substance: ALFACALCIDOL
     Dosage: .25 MICROGRAM DAILY; 0?0?1?0
     Route: 048
  7. CANDESARTAN. [Concomitant]
     Active Substance: CANDESARTAN
     Dosage: 16 MG, 1?0?0.5?0
     Route: 048
  8. NATRIUMHYDROGENCARBONAT [Concomitant]
     Active Substance: SODIUM BICARBONATE
     Dosage: 1 G, 2?1?2?0
     Route: 048
  9. TACROLIMUS. [Concomitant]
     Active Substance: TACROLIMUS
     Dosage: .5 MILLIGRAM DAILY; 0.5 MG, 0?0?1?0
     Route: 048
  10. PARACETAMOL [Concomitant]
     Active Substance: ACETAMINOPHEN
     Dosage: 4 DOSAGE FORMS DAILY; 500 MG, 2?0?2?0
     Route: 048
  11. MAGNESIUM GLUTAMATE [Concomitant]
     Dosage: 40|90 MG, 1?1?0?2, 1DF
     Route: 048
  12. SULFASALAZINE DELAYED?RELEASE [Concomitant]
     Active Substance: SULFASALAZINE
     Dosage: 500 MILLIGRAM DAILY; 500 MG, 1?0?0?0
     Route: 048
  13. OXYCODONE [Concomitant]
     Active Substance: OXYCODONE
     Dosage: 5 MILLIGRAM DAILY; 5 MG, 1?0?0?0
     Route: 048
  14. ALLOPURINOL. [Concomitant]
     Active Substance: ALLOPURINOL
     Dosage: 100 MILLIGRAM DAILY; 1?0?0?0
     Route: 048
  15. MYCOPHENOLIC ACID. [Concomitant]
     Active Substance: MYCOPHENOLIC ACID
     Dosage: 720 MILLIGRAM DAILY; 360 MG, 1?0?1?0
     Route: 048
  16. TILIDINE/NALOXONE [Concomitant]
     Active Substance: NALOXONE HYDROCHLORIDE\TILIDINE HYDROCHLORIDE
     Dosage: 4 DOSAGE FORMS DAILY; 4|50 MG, 2?0?2?0
     Route: 048
  17. COLECALCIFEROL VITAMIN D [Concomitant]
     Dosage: 20,000 IU, ACCORDING TO THE SCHEME
     Route: 048
  18. PANTOPRAZOL [Concomitant]
     Active Substance: PANTOPRAZOLE SODIUM
     Dosage: 40 MILLIGRAM DAILY; 1?0?0?0
     Route: 048

REACTIONS (3)
  - Gastrointestinal stoma complication [Unknown]
  - Blood creatinine increased [Unknown]
  - Dehydration [Unknown]
